FAERS Safety Report 8329155-3 (Version None)
Quarter: 2012Q2

REPORT INFORMATION
  Report Type: 
  Country: None (occurrence: None)
  Receive Date: 20120502
  Receipt Date: 20101020
  Transmission Date: 20120825
  Serious: No
  Sender: FDA-Public Use
  Company Number: US-TEVA-2010005546

PATIENT
  Sex: Male
  Weight: 122.58 kg

DRUGS (6)
  1. LIOTHYRONINE SODIUM [Concomitant]
     Dates: start: 20080101
  2. NUVIGIL [Suspect]
     Indication: CHRONIC FATIGUE SYNDROME
     Dosage: 50 MILLIGRAM;
     Route: 048
     Dates: start: 20101009
  3. NUVIGIL [Suspect]
     Indication: SLEEP APNOEA SYNDROME
     Dosage: 150 MILLIGRAM;
     Route: 048
     Dates: start: 20101005
  4. NUVIGIL [Suspect]
     Dosage: 75 MILLIGRAM;
     Route: 048
     Dates: start: 20101011
  5. LEVOTHYROXINE SODIUM [Concomitant]
     Dates: start: 20080101
  6. ALPRAZOLAM [Concomitant]

REACTIONS (7)
  - PERSONALITY CHANGE [None]
  - ABDOMINAL PAIN UPPER [None]
  - FATIGUE [None]
  - FEELING ABNORMAL [None]
  - ANXIETY [None]
  - INSOMNIA [None]
  - BLOOD PRESSURE INCREASED [None]
